FAERS Safety Report 8359757-X (Version None)
Quarter: 2012Q2

REPORT INFORMATION
  Report Type: 
  Country: None (occurrence: None)
  Receive Date: 20120515
  Receipt Date: 20120507
  Transmission Date: 20120825
  Serious: Yes (Hospitalization)
  Sender: FDA-Public Use
  Company Number: PHHO2009CZ10654

PATIENT
  Sex: Male
  Weight: 139 kg

DRUGS (1)
  1. ILARIS [Suspect]
     Indication: GOUT
     Dosage: 25 MG, ONCE/SINGLE
     Dates: start: 20090619, end: 20090814

REACTIONS (4)
  - ERYTHEMA [None]
  - ERYSIPELAS [None]
  - BLISTER [None]
  - PYREXIA [None]
